FAERS Safety Report 12991199 (Version 1)
Quarter: 2016Q4

REPORT INFORMATION
  Report Type: Spontaneous
  Country: US (occurrence: US)
  Receive Date: 20161201
  Receipt Date: 20161201
  Transmission Date: 20170207
  Serious: No
  Sender: FDA-Public Use
  Company Number: US-PURDUE-USA-2016-0133490

PATIENT
  Sex: Female
  Weight: 89.34 kg

DRUGS (1)
  1. OXYCODONE/ ACETAMINOPHEN TABLETS [Suspect]
     Active Substance: ACETAMINOPHEN\OXYCODONE HYDROCHLORIDE
     Indication: FIBROMYALGIA
     Dosage: 10/325 MG, 1 TABLET, Q4H PRN
     Route: 048
     Dates: start: 20160825

REACTIONS (5)
  - Nausea [Unknown]
  - Pruritus [Unknown]
  - Drug effect decreased [Unknown]
  - Headache [Unknown]
  - Intentional product use issue [Unknown]
